FAERS Safety Report 19785559 (Version 2)
Quarter: 2021Q3

REPORT INFORMATION
  Report Type: Report from Study
  Country: US (occurrence: US)
  Receive Date: 20210903
  Receipt Date: 20210913
  Transmission Date: 20211014
  Serious: Yes (Life-Threatening, Hospitalization)
  Sender: FDA-Public Use
  Company Number: NVSC2021US135532

PATIENT
  Sex: Female
  Weight: 74.7 kg

DRUGS (4)
  1. GSK1120212 [Suspect]
     Active Substance: TRAMETINIB
     Dosage: UNK
     Route: 048
     Dates: start: 20210511
  2. GSK1120212 [Suspect]
     Active Substance: TRAMETINIB
     Indication: MALIGNANT MELANOMA
     Dosage: 13 MG, UNK
     Route: 048
     Dates: start: 20210427, end: 20210510
  3. DABRAFENIB [Suspect]
     Active Substance: DABRAFENIB
     Indication: MALIGNANT MELANOMA
     Dosage: 1350 MG, UNK
     Route: 048
     Dates: start: 20210427, end: 20210510
  4. DABRAFENIB [Suspect]
     Active Substance: DABRAFENIB
     Dosage: UNK
     Route: 048
     Dates: start: 20210511

REACTIONS (4)
  - Ejection fraction decreased [Recovering/Resolving]
  - Myocardial infarction [Recovering/Resolving]
  - Hip fracture [Recovered/Resolved with Sequelae]
  - Wrist fracture [Recovered/Resolved with Sequelae]

NARRATIVE: CASE EVENT DATE: 20210510
